FAERS Safety Report 9293523 (Version 1)
Quarter: 2013Q2

REPORT INFORMATION
  Report Type: Spontaneous
  Country: DE (occurrence: DE)
  Receive Date: 20130516
  Receipt Date: 20130516
  Transmission Date: 20140414
  Serious: Yes (Life-Threatening, Hospitalization)
  Sender: FDA-Public Use
  Company Number: GXKR2013DE001830

PATIENT
  Sex: 0

DRUGS (4)
  1. CEFPODOXIME [Suspect]
     Route: 048
     Dates: start: 20130218
  2. METHADONE [Suspect]
     Dosage: DAILY INTAKE
     Route: 048
  3. IBUPROFEN [Suspect]
     Indication: PAIN
     Dosage: 400 MG/DAY
     Route: 048
  4. NOVALGIN /SWE/ [Suspect]
     Indication: PYREXIA
     Dosage: 500 MG/DAY
     Route: 048

REACTIONS (1)
  - Agranulocytosis [Not Recovered/Not Resolved]
